FAERS Safety Report 5723931-9 (Version None)
Quarter: 2008Q2

REPORT INFORMATION
  Report Type: 
  Country: None (occurrence: None)
  Receive Date: 20080430
  Receipt Date: 20080423
  Transmission Date: 20081010
  Serious: Yes (Other)
  Sender: FDA-Public Use
  Company Number: DE-BRISTOL-MYERS SQUIBB COMPANY-14169494

PATIENT
  Age: 66 Year
  Sex: Male

DRUGS (4)
  1. CETUXIMAB [Suspect]
     Indication: LARYNGEAL CANCER STAGE III
  2. CISPLATIN [Suspect]
     Indication: LARYNGEAL CANCER STAGE III
  3. DOCETAXEL [Suspect]
     Indication: LARYNGEAL CANCER STAGE III
  4. FLUOROURACIL [Suspect]
     Indication: LARYNGEAL CANCER STAGE III

REACTIONS (2)
  - LEUKOPENIA [None]
  - THROMBOCYTOPENIA [None]
